FAERS Safety Report 8164539-8 (Version None)
Quarter: 2012Q1

REPORT INFORMATION
  Report Type: 
  Country: None (occurrence: None)
  Receive Date: 20120224
  Receipt Date: 20120220
  Transmission Date: 20120608
  Serious: Yes (Hospitalization)
  Sender: FDA-Public Use
  Company Number: US-AMGEN-USANI2011020761

PATIENT
  Age: 67 Year
  Sex: Male
  Weight: 48.98 kg

DRUGS (11)
  1. CISPLATIN [Concomitant]
     Dosage: 33 MG/M2, Q4WK
     Route: 042
     Dates: start: 20110321, end: 20110411
  2. ENSURE [Concomitant]
  3. AQUAPHOR [Concomitant]
     Dosage: UNK UNK, BID
  4. PRILOSEC [Concomitant]
     Dosage: 40 MG, QD
  5. PANITUMUMAB [Suspect]
     Indication: HEAD AND NECK CANCER
     Dosage: 9 MG/KG, UNK
     Route: 042
     Dates: start: 20110302
  6. OXYCONTIN [Concomitant]
     Dosage: 60 MG, Q12H
  7. FLAXSEED OIL [Concomitant]
     Dosage: 1000 MG, QD
  8. DEXAMETHASONE [Concomitant]
     Dosage: 4 MG, BID
     Route: 048
  9. COMPAZINE [Concomitant]
  10. ZOFRAN [Concomitant]
     Dosage: 4 MG, Q8H
     Route: 048
  11. OXYCODONE HCL [Concomitant]
     Dosage: 5 MG, Q4H

REACTIONS (3)
  - OROPHARYNGEAL PAIN [None]
  - WEIGHT DECREASED [None]
  - DEHYDRATION [None]
